FAERS Safety Report 7006155-7 (Version None)
Quarter: 2010Q3

REPORT INFORMATION
  Report Type: 
  Country: None (occurrence: None)
  Receive Date: 20100921
  Receipt Date: 20100914
  Transmission Date: 20110219
  Serious: Yes (Other)
  Sender: FDA-Public Use
  Company Number: BR-PFIZER INC-2010112267

PATIENT
  Age: 51 Year
  Sex: Female

DRUGS (4)
  1. LIPITOR [Suspect]
     Indication: BLOOD CHOLESTEROL
     Dosage: 20 MG, 1X/DAY
     Route: 048
     Dates: start: 20100601
  2. SOMALGIN [Concomitant]
     Dosage: UNK
     Dates: start: 20090101
  3. LOSARTAN POTASSIUM [Concomitant]
     Dosage: UNK
     Dates: start: 20080101
  4. CLOPIDOGREL BISULFATE [Concomitant]
     Dosage: UNK
     Dates: start: 20100701

REACTIONS (1)
  - LIVER INJURY [None]
